FAERS Safety Report 4523066-7 (Version None)
Quarter: 2004Q4

REPORT INFORMATION
  Report Type: 
  Country: None (occurrence: None)
  Receive Date: 20041210
  Receipt Date: 20041130
  Transmission Date: 20050328
  Serious: Yes (Other)
  Sender: FDA-Public Use
  Company Number: JP-JNJFOC-20041106415

PATIENT

DRUGS (1)
  1. DUROTEP [Suspect]
     Indication: UNEVALUABLE EVENT
     Route: 062

REACTIONS (1)
  - DELIRIUM [None]
